FAERS Safety Report 7047391-3 (Version None)
Quarter: 2010Q4

REPORT INFORMATION
  Report Type: 
  Country: None (occurrence: None)
  Receive Date: 20101015
  Receipt Date: 20101007
  Transmission Date: 20110411
  Serious: Yes (Other)
  Sender: FDA-Public Use
  Company Number: US-TEVA-248539USA

PATIENT
  Sex: Female

DRUGS (2)
  1. CLARAVIS [Suspect]
     Indication: HYPERKERATOSIS PALMARIS AND PLANTARIS
     Dates: start: 20100221, end: 20100913
  2. CLARAVIS [Suspect]
     Dosage: 40MG+10MG
     Dates: start: 20090724, end: 20090101

REACTIONS (1)
  - UNINTENDED PREGNANCY [None]
